FAERS Safety Report 20903179 (Version 2)
Quarter: 2022Q2

REPORT INFORMATION
  Report Type: Report from Study
  Country: IN (occurrence: IN)
  Receive Date: 20220601
  Receipt Date: 20220609
  Transmission Date: 20220721
  Serious: Yes (Death)
  Sender: FDA-Public Use
  Company Number: IN-PFIZER INC-202200778842

PATIENT
  Age: 70 Year
  Sex: Male
  Weight: 59 kg

DRUGS (1)
  1. GLASDEGIB [Suspect]
     Active Substance: GLASDEGIB
     Dosage: UNK

REACTIONS (2)
  - Febrile neutropenia [Fatal]
  - Septic shock [Fatal]

NARRATIVE: CASE EVENT DATE: 20220529
